FAERS Safety Report 8811807 (Version 1)
Quarter: 2012Q4

REPORT INFORMATION
  Report Type: 
  Country: US (occurrence: US)
  Receive Date: 20120927
  Receipt Date: 20120927
  Transmission Date: 20130627
  Serious: Yes (Hospitalization)
  Sender: FDA-Public Use
  Company Number: US-GLAXOSMITHKLINE-A0833517A

PATIENT
  Age: 51 Year
  Sex: Male
  Weight: 122.7 kg

DRUGS (5)
  1. AVANDIA [Suspect]
     Indication: DIABETES MELLITUS
     Dosage: 8MG Per day
     Route: 048
     Dates: start: 1999, end: 20070925
  2. TOPROL XL [Concomitant]
  3. LIPITOR [Concomitant]
  4. HYZAAR [Concomitant]
  5. INSULIN [Concomitant]

REACTIONS (3)
  - Myocardial infarction [Recovering/Resolving]
  - Cardiac failure congestive [Unknown]
  - Coronary artery disease [Unknown]
